FAERS Safety Report 7031544-4 (Version None)
Quarter: 2010Q4

REPORT INFORMATION
  Report Type: 
  Country: None (occurrence: None)
  Receive Date: 20101006
  Receipt Date: 20101006
  Transmission Date: 20110411
  Serious: Yes (Hospitalization, Other)
  Sender: FDA-Public Use
  Company Number: None

PATIENT
  Sex: Female
  Weight: 73.8 kg

DRUGS (1)
  1. MYCOPHENOLATE 250MG CAPSULES MYLAN PHARMACEUTICALS [Suspect]
     Indication: LUPUS NEPHRITIS
     Dosage: 750 MG EVERY 12 HOURS PO
     Route: 048
     Dates: start: 20090929, end: 20100929

REACTIONS (6)
  - DISCOMFORT [None]
  - DYSPNOEA [None]
  - FATIGUE [None]
  - OEDEMA [None]
  - PAIN IN EXTREMITY [None]
  - SWOLLEN TONGUE [None]
